FAERS Safety Report 6717041-1 (Version None)
Quarter: 2010Q2

REPORT INFORMATION
  Report Type: 
  Country: None (occurrence: None)
  Receive Date: 20100510
  Receipt Date: 20100406
  Transmission Date: 20101027
  Serious: No
  Sender: FDA-Public Use
  Company Number: US-BAYER-201014049BCC

PATIENT
  Sex: Female
  Weight: 51 kg

DRUGS (8)
  1. ALEVE (CAPLET) [Suspect]
     Indication: BACK PAIN
     Dosage: TOTAL DAILY DOSE: 220 MG  UNIT DOSE: 220 MG
     Route: 048
     Dates: start: 20100406
  2. RAPAMIL [Concomitant]
     Route: 065
  3. CONAPROLE [Concomitant]
     Route: 065
  4. LIPITOR [Concomitant]
     Route: 065
  5. KLONOPIN [Concomitant]
     Route: 065
  6. REMERON [Concomitant]
     Route: 065
  7. TRAMADOL [Concomitant]
     Route: 065
  8. ASPIRIN [Concomitant]
     Route: 065

REACTIONS (2)
  - ABDOMINAL DISTENSION [None]
  - FLATULENCE [None]
